FAERS Safety Report 9356090 (Version 1)
Quarter: 2013Q2

REPORT INFORMATION
  Report Type: Spontaneous
  Country: FR (occurrence: FR)
  Receive Date: 20130619
  Receipt Date: 20130619
  Transmission Date: 20140414
  Serious: Yes (Hospitalization)
  Sender: FDA-Public Use
  Company Number: FR-TEVA-413386ISR

PATIENT
  Age: 58 Year
  Sex: Female

DRUGS (8)
  1. ESTREVA 0.1 % [Suspect]
     Indication: HORMONE REPLACEMENT THERAPY
     Route: 061
     Dates: start: 20130301, end: 201304
  2. ESTIMA 100 MG [Suspect]
     Indication: HORMONE REPLACEMENT THERAPY
     Route: 048
     Dates: start: 20130301, end: 201304
  3. CORTANCYL [Concomitant]
     Dosage: 12.5 MILLIGRAM DAILY;
  4. DIFFU K [Concomitant]
  5. ESOMEPRAZOLE [Concomitant]
  6. KENZEN 8 MG [Concomitant]
  7. CRESTOR 5 MG [Concomitant]
  8. LEVOTHYROX [Concomitant]
     Dosage: 25 MICROGRAM DAILY;

REACTIONS (1)
  - Transient ischaemic attack [Recovered/Resolved]
